FAERS Safety Report 6268160-8 (Version None)
Quarter: 2009Q3

REPORT INFORMATION
  Report Type: 
  Country: None (occurrence: None)
  Receive Date: 20090713
  Receipt Date: 20090713
  Transmission Date: 20100115
  Serious: Yes (Other)
  Sender: FDA-Public Use
  Company Number: None

PATIENT
  Sex: Female
  Weight: 73.4827 kg

DRUGS (1)
  1. BUPROPION HCL [Suspect]
     Indication: ANXIETY DISORDER
     Dosage: 100 MG 1 DAILY ORAL
     Route: 048
     Dates: start: 20081021, end: 20081222

REACTIONS (2)
  - FEELING ABNORMAL [None]
  - TREMOR [None]
